FAERS Safety Report 7963620-3 (Version None)
Quarter: 2011Q4

REPORT INFORMATION
  Report Type: 
  Country: None (occurrence: None)
  Receive Date: 20111208
  Receipt Date: 20111128
  Transmission Date: 20120403
  Serious: Yes (Hospitalization, Other)
  Sender: FDA-Public Use
  Company Number: US-BAYER-2011-049723

PATIENT
  Sex: Female
  Weight: 82 kg

DRUGS (14)
  1. TOPIRAMATE [Concomitant]
     Indication: SLEEP DISORDER
  2. HYDROCODONE BITARTRATE [Concomitant]
     Indication: SLEEP DISORDER
  3. YASMIN [Suspect]
     Indication: ACNE
     Dosage: UNK
     Dates: start: 20080101, end: 20100101
  4. TOPIRAMATE [Concomitant]
     Indication: HEADACHE
     Dosage: UNK
     Dates: start: 20090101, end: 20110101
  5. SUMATRIPTAN [Concomitant]
     Indication: SLEEP DISORDER
  6. METHYLPREDNISOLONE [Concomitant]
     Indication: SLEEP DISORDER
  7. METHYLPREDNISOLONE [Concomitant]
     Indication: HEADACHE
     Dosage: UNK
     Dates: start: 20090101, end: 20110101
  8. NAPROXEN SODIUM AND PSEUDOEPHEDRINE HYDROCHLORIDE [Concomitant]
     Indication: SLEEP DISORDER
  9. NAPROXEN SODIUM AND PSEUDOEPHEDRINE HYDROCHLORIDE [Concomitant]
     Indication: HEADACHE
     Dosage: UNK
     Dates: start: 20090101, end: 20110101
  10. HYDROCODONE BITARTRATE [Concomitant]
     Indication: HEADACHE
     Dosage: UNK
     Dates: start: 20090101, end: 20110101
  11. AMITRIPTYLINE HCL [Concomitant]
     Indication: SLEEP DISORDER
  12. AMITRIPTYLINE HCL [Concomitant]
     Indication: HEADACHE
     Dosage: UNK
     Dates: start: 20090101, end: 20110101
  13. SUMATRIPTAN [Concomitant]
     Indication: HEADACHE
     Dosage: UNK
     Dates: start: 20090101, end: 20110101
  14. YASMIN [Suspect]
     Indication: ORAL CONTRACEPTION

REACTIONS (11)
  - CHOLECYSTITIS CHRONIC [None]
  - MYOCARDIAL INFARCTION [None]
  - CEREBROVASCULAR ACCIDENT [None]
  - GALLBLADDER DISORDER [None]
  - DEEP VEIN THROMBOSIS [None]
  - HEADACHE [None]
  - PAIN [None]
  - SLEEP DISORDER [None]
  - PULMONARY EMBOLISM [None]
  - BILIARY DYSKINESIA [None]
  - INJURY [None]
